FAERS Safety Report 12319920 (Version 4)
Quarter: 2017Q2

REPORT INFORMATION
  Report Type: Spontaneous
  Country: US (occurrence: US)
  Receive Date: 20160429
  Receipt Date: 20170601
  Transmission Date: 20170830
  Serious: Yes (Hospitalization)
  Sender: FDA-Public Use
  Company Number: US-ROCHE-1631335

PATIENT
  Age: 67 Year
  Sex: Female

DRUGS (7)
  1. METOPROLOL. [Concomitant]
     Active Substance: METOPROLOL
  2. OXYGEN. [Concomitant]
     Active Substance: OXYGEN
  3. CARDIZEM [Concomitant]
     Active Substance: DILTIAZEM HYDROCHLORIDE
  4. WARFARIN SODIUM. [Concomitant]
     Active Substance: WARFARIN SODIUM
  5. ESBRIET [Suspect]
     Active Substance: PIRFENIDONE
     Indication: IDIOPATHIC PULMONARY FIBROSIS
     Route: 048
     Dates: start: 20150711
  6. DILTIAZEM ER [Concomitant]
     Active Substance: DILTIAZEM
  7. TOPROL XL [Concomitant]
     Active Substance: METOPROLOL SUCCINATE

REACTIONS (13)
  - Decreased appetite [Unknown]
  - Stomatitis [Unknown]
  - Memory impairment [Unknown]
  - Somnolence [Unknown]
  - Nausea [Unknown]
  - Dysgeusia [Unknown]
  - Glossitis [Unknown]
  - Nasal discomfort [Unknown]
  - Pneumonia [Unknown]
  - Fatigue [Unknown]
  - Ageusia [Unknown]
  - Drug dose omission [Unknown]
  - Dry mouth [Unknown]

NARRATIVE: CASE EVENT DATE: 201510
